FAERS Safety Report 13940994 (Version 1)
Quarter: 2017Q3

REPORT INFORMATION
  Report Type: Spontaneous
  Country: US (occurrence: US)
  Receive Date: 20170906
  Receipt Date: 20170906
  Transmission Date: 20171127
  Serious: Yes (Death)
  Sender: FDA-Public Use
  Company Number: US-PFIZER INC-2017328200

PATIENT
  Age: 52 Year
  Sex: Male
  Weight: 75 kg

DRUGS (5)
  1. TORISEL [Suspect]
     Active Substance: TEMSIROLIMUS
     Indication: OESOPHAGEAL CARCINOMA
     Dosage: 25 MG, WEEKLY (25MG ONE INTRAVENOUS INFUSION EVERY 7 DAYS)
     Route: 042
     Dates: start: 20170712
  2. DILTIAZEM. [Concomitant]
     Active Substance: DILTIAZEM
     Dosage: 60 MG, 4X/DAY (60MG ONE TABLET BY MOUTH EVERY 6 HOURS)
     Route: 048
  3. XARELTO [Concomitant]
     Active Substance: RIVAROXABAN
     Dosage: 20 MG, DAILY
     Route: 048
  4. OXYCODONE [Concomitant]
     Active Substance: OXYCODONE
     Indication: PAIN
     Dosage: 15 MG, AS NEEDED (15MG ONE TABLET BY MOUTH EVERY FOUR HOURS WHEN NEEDED)
     Route: 048
  5. DIGOXIN. [Concomitant]
     Active Substance: DIGOXIN
     Dosage: 125 UG, DAILY
     Route: 048

REACTIONS (3)
  - Product use in unapproved indication [Unknown]
  - Myocardial infarction [Fatal]
  - Cardiac arrest [Fatal]

NARRATIVE: CASE EVENT DATE: 20170712
